FAERS Safety Report 8933024 (Version 1)
Quarter: 2012Q4

REPORT INFORMATION
  Report Type: Spontaneous
  Country: US (occurrence: None)
  Receive Date: 20121127
  Receipt Date: 20121127
  Transmission Date: 20130627
  Serious: Yes (Hospitalization)
  Sender: FDA-Public Use
  Company Number: None

PATIENT
  Age: 59 Year
  Sex: Male
  Weight: 74.3 kg

DRUGS (1)
  1. LISINOPRIL [Suspect]
     Indication: HYPERTENSION
     Route: 048
     Dates: start: 20110115, end: 20120901

REACTIONS (11)
  - Middle insomnia [None]
  - Dry mouth [None]
  - Local swelling [None]
  - Swollen tongue [None]
  - Dysphagia [None]
  - Tremor [None]
  - Agitation [None]
  - Hyperhidrosis [None]
  - Palpitations [None]
  - Angioedema [None]
  - Alcohol withdrawal syndrome [None]
